FAERS Safety Report 4497756-9 (Version None)
Quarter: 2004Q4

REPORT INFORMATION
  Report Type: 
  Country: None (occurrence: None)
  Receive Date: 20041104
  Receipt Date: 20041026
  Transmission Date: 20050328
  Serious: Yes (Other)
  Sender: FDA-Public Use
  Company Number: 2004-10-1044

PATIENT
  Age: 41 Year
  Sex: Female

DRUGS (1)
  1. INTRON A [Suspect]
     Indication: NON-HODGKIN'S LYMPHOMA
     Dosage: 6 MIU TIW SUBCUTANEOUS
     Route: 058
     Dates: start: 19980101, end: 20041014

REACTIONS (1)
  - LUNG ADENOCARCINOMA [None]
